FAERS Safety Report 7163979-3 (Version None)
Quarter: 2010Q4

REPORT INFORMATION
  Report Type: 
  Country: None (occurrence: None)
  Receive Date: 20101215
  Receipt Date: 20101203
  Transmission Date: 20110411
  Serious: Yes (Hospitalization)
  Sender: FDA-Public Use
  Company Number: A0790466A

PATIENT
  Age: 58 Year
  Sex: Male

DRUGS (2)
  1. AVANDAMET [Suspect]
     Dosage: 500MG PER DAY
     Route: 065
     Dates: start: 20040101, end: 20050101
  2. AVANDIA [Suspect]
     Dosage: 2MG PER DAY
     Route: 065
     Dates: start: 20050501, end: 20070401

REACTIONS (2)
  - MYOCARDIAL INFARCTION [None]
  - MYOCARDIAL ISCHAEMIA [None]
